FAERS Safety Report 4596448-5 (Version None)
Quarter: 2005Q1

REPORT INFORMATION
  Report Type: 
  Country: None (occurrence: None)
  Receive Date: 20050228
  Receipt Date: 20050210
  Transmission Date: 20050727
  Serious: Yes (Hospitalization, Other)
  Sender: FDA-Public Use
  Company Number: L05-USA-00520-01

PATIENT
  Age: 82 Year
  Sex: Female

DRUGS (4)
  1. CITALOPRAM HYDROBROMIDE [Suspect]
     Indication: OVERDOSE
     Dosage: 1.6 G ONCE
  2. CITALOPRAM HYDROBROMIDE [Suspect]
     Dosage: 20 MG QD
  3. LANSOPRAZOLE [Concomitant]
  4. ATORVASTATIN [Concomitant]

REACTIONS (18)
  - ANTIDEPRESSANT DRUG LEVEL ABOVE THERAPEUTIC [None]
  - BLOOD BICARBONATE DECREASED [None]
  - BLOOD PH DECREASED [None]
  - BLOOD PRESSURE SYSTOLIC INCREASED [None]
  - BODY TEMPERATURE DECREASED [None]
  - BUNDLE BRANCH BLOCK LEFT [None]
  - ELECTROCARDIOGRAM QRS COMPLEX PROLONGED [None]
  - ELECTROCARDIOGRAM QT CORRECTED INTERVAL PROLONGED [None]
  - ELECTROCARDIOGRAM QT PROLONGED [None]
  - GRAND MAL CONVULSION [None]
  - INTENTIONAL MISUSE [None]
  - NEUROLOGICAL EXAMINATION ABNORMAL [None]
  - NODAL ARRHYTHMIA [None]
  - POSTICTAL STATE [None]
  - RESPIRATORY RATE INCREASED [None]
  - SINUS ARREST [None]
  - SINUS BRADYCARDIA [None]
  - SUICIDE ATTEMPT [None]
